FAERS Safety Report 11139906 (Version 2)
Quarter: 2015Q2

REPORT INFORMATION
  Report Type: Spontaneous
  Country: US (occurrence: US)
  Receive Date: 20150527
  Receipt Date: 20150603
  Transmission Date: 20150821
  Serious: No
  Sender: FDA-Public Use
  Company Number: US-PFIZER INC-2015172526

PATIENT
  Age: 33 Year
  Sex: Female

DRUGS (1)
  1. BOSULIF [Suspect]
     Active Substance: BOSUTINIB MONOHYDRATE
     Indication: CHRONIC LYMPHOCYTIC LEUKAEMIA
     Dosage: 500 MG, DAILY
     Route: 048
     Dates: start: 20150423

REACTIONS (3)
  - Nausea [Unknown]
  - Product use issue [Unknown]
  - Diarrhoea [Unknown]
